FAERS Safety Report 11583655 (Version 1)
Quarter: 2015Q3

REPORT INFORMATION
  Report Type: Spontaneous
  Country: US (occurrence: None)
  Receive Date: 20150930
  Receipt Date: 20150930
  Transmission Date: 20151125
  Serious: Yes (Hospitalization)
  Sender: FDA-Public Use
  Company Number: None

PATIENT
  Age: 67 Year
  Sex: Male
  Weight: 81.8 kg

DRUGS (1)
  1. HALOPERIDOL. [Suspect]
     Active Substance: HALOPERIDOL
     Dosage: MG
     Route: 048
     Dates: start: 20150522, end: 20150707

REACTIONS (7)
  - Pyrexia [None]
  - Headache [None]
  - Parkinson^s disease [None]
  - Asthenia [None]
  - Cough [None]
  - Fall [None]
  - Hypophagia [None]

NARRATIVE: CASE EVENT DATE: 20150704
